FAERS Safety Report 5033433-3 (Version None)
Quarter: 2006Q2

REPORT INFORMATION
  Report Type: 
  Country: None (occurrence: None)
  Receive Date: 20060621
  Receipt Date: 20060613
  Transmission Date: 20061013
  Serious: Yes (Other)
  Sender: FDA-Public Use
  Company Number: 2006-06-0865

PATIENT
  Age: 22 Year
  Sex: Male

DRUGS (1)
  1. TEMODAR [Suspect]
     Indication: ASTROCYTOMA
     Dosage: ORAL
     Route: 048
     Dates: start: 20050301, end: 20050901

REACTIONS (8)
  - ANOREXIA [None]
  - ASTROCYTOMA [None]
  - DIFFICULTY IN WALKING [None]
  - DYSACUSIS [None]
  - DYSPHAGIA [None]
  - FATIGUE [None]
  - NEOPLASM RECURRENCE [None]
  - WEIGHT DECREASED [None]
